FAERS Safety Report 23184666 (Version 1)
Quarter: 2023Q4

REPORT INFORMATION
  Report Type: Spontaneous
  Country: CA (occurrence: CA)
  Receive Date: 20231115
  Receipt Date: 20231115
  Transmission Date: 20240110
  Serious: Yes (Other)
  Sender: FDA-Public Use
  Company Number: CA-SANDOZ-SDZ2023CA053093

PATIENT
  Age: 14 Year
  Sex: Female

DRUGS (12)
  1. LEVETIRACETAM [Suspect]
     Active Substance: LEVETIRACETAM
     Indication: Nervous system disorder
     Dosage: UNK
     Route: 065
  2. PYRAZINAMIDE [Suspect]
     Active Substance: PYRAZINAMIDE
     Indication: Disseminated tuberculosis
     Route: 065
  3. RIFAMPIN [Suspect]
     Active Substance: RIFAMPIN
     Indication: Disseminated tuberculosis
     Dosage: UNK
     Route: 065
  4. RIFABUTIN [Suspect]
     Active Substance: RIFABUTIN
     Indication: Disseminated tuberculosis
     Dosage: UNK
     Route: 065
  5. DEXAMETHASONE [Concomitant]
     Active Substance: DEXAMETHASONE
     Indication: Disseminated tuberculosis
     Route: 065
  6. DEXAMETHASONE [Concomitant]
     Active Substance: DEXAMETHASONE
     Indication: Disseminated tuberculosis
     Route: 065
  7. ETHAMBUTOL [Concomitant]
     Active Substance: ETHAMBUTOL HYDROCHLORIDE
     Indication: Disseminated tuberculosis
     Route: 065
  8. ETHAMBUTOL [Concomitant]
     Active Substance: ETHAMBUTOL HYDROCHLORIDE
     Indication: Disseminated tuberculosis
     Route: 065
  9. ISONIAZID [Concomitant]
     Active Substance: ISONIAZID
     Indication: Disseminated tuberculosis
     Route: 065
  10. ISONIAZID [Concomitant]
     Active Substance: ISONIAZID
     Indication: Disseminated tuberculosis
     Route: 065
  11. MOXIFLOXACIN [Concomitant]
     Active Substance: MOXIFLOXACIN
     Indication: Disseminated tuberculosis
     Route: 065
  12. MOXIFLOXACIN [Concomitant]
     Active Substance: MOXIFLOXACIN
     Indication: Disseminated tuberculosis
     Route: 065

REACTIONS (2)
  - Toxicity to various agents [Recovered/Resolved]
  - Drug reaction with eosinophilia and systemic symptoms [Recovered/Resolved]
